FAERS Safety Report 11887259 (Version 3)
Quarter: 2016Q3

REPORT INFORMATION
  Report Type: Spontaneous
  Country: US (occurrence: US)
  Receive Date: 20160104
  Receipt Date: 20160720
  Transmission Date: 20161109
  Serious: Yes (Hospitalization)
  Sender: FDA-Public Use
  Company Number: US-ACTELION-A-NJ2015-129339

PATIENT
  Age: 77 Year
  Sex: Male

DRUGS (9)
  1. ASPIRIN. [Concomitant]
     Active Substance: ASPIRIN
  2. PREDNISONE. [Concomitant]
     Active Substance: PREDNISONE
  3. GABAPENTIN. [Concomitant]
     Active Substance: GABAPENTIN
  4. PROAIR HFA [Concomitant]
     Active Substance: ALBUTEROL SULFATE
  5. BACTRIM DS [Concomitant]
     Active Substance: SULFAMETHOXAZOLE\TRIMETHOPRIM
  6. FUROSEMIDE. [Concomitant]
     Active Substance: FUROSEMIDE
  7. LEVOFLOXACIN. [Concomitant]
     Active Substance: LEVOFLOXACIN
  8. OPSUMIT [Suspect]
     Active Substance: MACITENTAN
     Indication: PULMONARY ARTERIAL HYPERTENSION
     Dosage: 10 MG, QD
     Route: 048
     Dates: start: 20150320
  9. SPIRIVA [Concomitant]
     Active Substance: TIOTROPIUM BROMIDE MONOHYDRATE

REACTIONS (5)
  - Bacterial test positive [Not Recovered/Not Resolved]
  - Nasal congestion [Unknown]
  - Pulmonary oedema [Not Recovered/Not Resolved]
  - Dyspnoea [Unknown]
  - Pneumonia [Not Recovered/Not Resolved]

NARRATIVE: CASE EVENT DATE: 20160517
